FAERS Safety Report 5991735-8 (Version None)
Quarter: 2008Q4

REPORT INFORMATION
  Report Type: 
  Country: None (occurrence: None)
  Receive Date: 20081211
  Receipt Date: 20081208
  Transmission Date: 20090506
  Serious: Yes (Hospitalization)
  Sender: FDA-Public Use
  Company Number: FR-WYE-G02733208

PATIENT
  Sex: Female

DRUGS (2)
  1. ADVIL LIQUI-GELS [Suspect]
     Indication: INFLUENZA LIKE ILLNESS
     Dosage: UNKNOWN
     Route: 048
     Dates: start: 20080825, end: 20080831
  2. DAFALGAN [Concomitant]
     Indication: INFLUENZA LIKE ILLNESS
     Dosage: 4 G TOTAL DAILY
     Route: 048
     Dates: start: 20080825, end: 20080831

REACTIONS (4)
  - C-REACTIVE PROTEIN INCREASED [None]
  - CYTOLYTIC HEPATITIS [None]
  - PYREXIA [None]
  - RENAL FAILURE ACUTE [None]
